FAERS Safety Report 7762448-7 (Version None)
Quarter: 2011Q3

REPORT INFORMATION
  Report Type: 
  Country: None (occurrence: None)
  Receive Date: 20110920
  Receipt Date: 20110908
  Transmission Date: 20111222
  Serious: Yes (Hospitalization)
  Sender: FDA-Public Use
  Company Number: US-BAYER-2011-001430

PATIENT
  Age: 22 Year
  Sex: Female
  Weight: 62 kg

DRUGS (3)
  1. YASMIN [Suspect]
     Indication: CONTRACEPTION
     Dosage: UNK
     Route: 048
     Dates: start: 20050501, end: 20050501
  2. YASMIN [Suspect]
     Dosage: UNK
     Dates: start: 20051001, end: 20051201
  3. YAZ [Suspect]
     Indication: PRODUCT USED FOR UNKNOWN INDICATION
     Dosage: UNK
     Route: 048
     Dates: start: 20090801, end: 20091001

REACTIONS (6)
  - MUSCLE SPASMS [None]
  - PAIN [None]
  - FATIGUE [None]
  - PULMONARY EMBOLISM [None]
  - DYSPNOEA [None]
  - HEADACHE [None]
